FAERS Safety Report 9175556 (Version 1)
Quarter: 2013Q1

REPORT INFORMATION
  Report Type: Spontaneous
  Country: US (occurrence: US)
  Receive Date: 20130320
  Receipt Date: 20130320
  Transmission Date: 20140127
  Serious: Yes (Hospitalization)
  Sender: FDA-Public Use
  Company Number: US-JNJFOC-20040600523

PATIENT
  Age: 79 Year
  Sex: Female

DRUGS (7)
  1. MOTRIN IB [Suspect]
     Route: 048
  2. MOTRIN IB [Suspect]
     Indication: ARTHRITIS
     Dosage: AS NECESSARY
     Route: 048
     Dates: start: 20040208, end: 20040218
  3. VALDECOXIB [Concomitant]
     Route: 048
     Dates: start: 20040220
  4. EXTRA STRENGTH TYLENOL [Concomitant]
     Route: 048
     Dates: start: 200401, end: 200402
  5. BUFFERIN [Concomitant]
     Dosage: 325-650 MG, BID, AS NECESSARY
     Route: 048
     Dates: start: 200401, end: 200402
  6. CELEBREX [Concomitant]
     Route: 048
     Dates: start: 20040210, end: 20040212
  7. GLUCOSAMINE + CHONDROITIN SULFATE [Concomitant]
     Dosage: DAILY, AS NECESSARY
     Route: 048
     Dates: start: 200402, end: 200402

REACTIONS (1)
  - Cellulitis [Unknown]
